FAERS Safety Report 9216329 (Version 1)
Quarter: 2013Q2

REPORT INFORMATION
  Report Type: Spontaneous
  Country: US (occurrence: None)
  Receive Date: 20130402
  Receipt Date: 20130402
  Transmission Date: 20140414
  Serious: Yes (Other)
  Sender: FDA-Public Use
  Company Number: ACO_34976_2013

PATIENT
  Age: 32 Year
  Sex: Female
  Weight: 56.1 kg

DRUGS (7)
  1. AMPYRA (DALFAMPRIDINE) TABLET, 10MG [Suspect]
     Indication: GAIT DISTURBANCE
     Route: 048
  2. BACLOFEN (BACLOFEN) [Concomitant]
  3. BETASERON (INTERFERON BETA-1B) [Concomitant]
  4. GABAPENTIN (GABAPENTIN) [Concomitant]
  5. PROVIGIL (MODAFINIL) [Concomitant]
  6. TOPAMAX (TOPIRAMATE) [Concomitant]
  7. TYLENOL (PARACETAMOL) [Concomitant]

REACTIONS (3)
  - Intervertebral disc protrusion [None]
  - Fall [None]
  - Pain [None]
